FAERS Safety Report 10120689 (Version 1)
Quarter: 2014Q2

REPORT INFORMATION
  Report Type: Spontaneous
  Country: US (occurrence: US)
  Receive Date: 20140425
  Receipt Date: 20140425
  Transmission Date: 20141212
  Serious: No
  Sender: FDA-Public Use
  Company Number: US-009507513-1404USA008824

PATIENT
  Sex: Male

DRUGS (1)
  1. LOTRIMIN AF ATHLETE^S FOOT DEODORANT SPRAY POWDER [Suspect]
     Indication: PRURITUS
     Dosage: UNK, UNKNOWN
     Route: 061
     Dates: start: 20140408

REACTIONS (6)
  - Chemical injury [Unknown]
  - Application site discolouration [Unknown]
  - Blister [Unknown]
  - Pain in extremity [Unknown]
  - Skin exfoliation [Unknown]
  - Feeling cold [Recovered/Resolved]
